FAERS Safety Report 14975796 (Version 2)
Quarter: 2018Q2

REPORT INFORMATION
  Report Type: Spontaneous
  Country: PT (occurrence: PT)
  Receive Date: 20180605
  Receipt Date: 20180628
  Transmission Date: 20180711
  Serious: Yes (Hospitalization, Other)
  Sender: FDA-Public Use
  Company Number: PT-MYLANLABS-2018M1037238

PATIENT
  Age: 73 Year
  Sex: Male

DRUGS (2)
  1. WARFARIN [Suspect]
     Active Substance: WARFARIN
     Indication: PROSTHESIS IMPLANTATION
     Route: 065
  2. ACETYLSALICYLIC ACID [Suspect]
     Active Substance: ASPIRIN
     Indication: PROSTHESIS IMPLANTATION
     Route: 065

REACTIONS (6)
  - Labelled drug-drug interaction medication error [Recovered/Resolved]
  - Thrombocytopenia [Recovered/Resolved]
  - Anaemia [Recovered/Resolved]
  - Haematochezia [Recovered/Resolved]
  - Drug administration error [Unknown]
  - Colonic haematoma [Recovered/Resolved]
